FAERS Safety Report 8193489-6 (Version None)
Quarter: 2012Q1

REPORT INFORMATION
  Report Type: 
  Country: None (occurrence: None)
  Receive Date: 20120308
  Receipt Date: 20120228
  Transmission Date: 20120608
  Serious: Yes (Hospitalization)
  Sender: FDA-Public Use
  Company Number: IT-SANOFI-AVENTIS-2012SA012960

PATIENT
  Age: 81 Year
  Sex: Male

DRUGS (2)
  1. TENORMIN [Suspect]
     Indication: ATRIAL FIBRILLATION
     Route: 048
     Dates: start: 20110101, end: 20111127
  2. LASIX [Suspect]
     Route: 048
     Dates: start: 20100101, end: 20111125

REACTIONS (4)
  - ORTHOSTATIC HYPOTENSION [None]
  - HUMERUS FRACTURE [None]
  - BRADYCARDIA [None]
  - FALL [None]
